FAERS Safety Report 5160809-6 (Version None)
Quarter: 2006Q4

REPORT INFORMATION
  Report Type: 
  Country: None (occurrence: None)
  Receive Date: 20061121
  Receipt Date: 20061109
  Transmission Date: 20070319
  Serious: Yes (Death, Other)
  Sender: FDA-Public Use
  Company Number: FI-2006-035402

PATIENT
  Age: 74 Year
  Sex: Female

DRUGS (11)
  1. FLUDARA [Suspect]
     Indication: CHRONIC LYMPHOCYTIC LEUKAEMIA
     Dosage: 50 MG, UNK, ORAL
     Route: 048
     Dates: start: 20060818, end: 20060822
  2. FLUDARA [Suspect]
     Indication: CHRONIC LYMPHOCYTIC LEUKAEMIA
     Dosage: 50 MG, UNK, ORAL
     Route: 048
     Dates: start: 20060914, end: 20060916
  3. SENOXAN [Concomitant]
  4. FURESIS [Concomitant]
  5. EMCONCOR  /BEL/(BISOPROLOL FUMARATE) [Concomitant]
  6. TREXAN  /FIN/(METHOTREXATE) [Concomitant]
  7. KALCIPOS-D [Concomitant]
  8. VERPAMIL [Concomitant]
  9. MAREVAN ^ORION^ (WARAFARIN SODIUM) [Concomitant]
  10. BRICANYL [Concomitant]
  11. PULMICORT [Concomitant]

REACTIONS (8)
  - BLOOD IMMUNOGLOBULIN M INCREASED [None]
  - CSF PROTEIN INCREASED [None]
  - CSF WHITE BLOOD CELL COUNT INCREASED [None]
  - DYSPHAGIA [None]
  - HYPOXIA [None]
  - MUSCULAR WEAKNESS [None]
  - NEUROPATHY PERIPHERAL [None]
  - PNEUMONIA ASPIRATION [None]
